FAERS Safety Report 9713905 (Version 1)
Quarter: 2013Q4

REPORT INFORMATION
  Report Type: Spontaneous
  Country: US (occurrence: None)
  Receive Date: 20131126
  Receipt Date: 20131126
  Transmission Date: 20140711
  Serious: Yes (Life-Threatening, Hospitalization, Disabling)
  Sender: FDA-Public Use
  Company Number: None

PATIENT
  Age: 43 Month
  Sex: Male
  Weight: 114.76 kg

DRUGS (1)
  1. LIPITOR [Suspect]

REACTIONS (14)
  - Irritability [None]
  - Paranoia [None]
  - Headache [None]
  - Migraine [None]
  - Depression [None]
  - Malaise [None]
  - Paraesthesia [None]
  - Hallucination, visual [None]
  - Crying [None]
  - Confusional state [None]
  - Fear [None]
  - Mental impairment [None]
  - Suicidal ideation [None]
  - Intentional self-injury [None]
